FAERS Safety Report 19898877 (Version 1)
Quarter: 2021Q3

REPORT INFORMATION
  Report Type: Spontaneous
  Country: US (occurrence: US)
  Receive Date: 20210930
  Receipt Date: 20210930
  Transmission Date: 20211014
  Serious: Yes (Death, Hospitalization)
  Sender: FDA-Public Use
  Company Number: US-JNJFOC-20210936030

PATIENT
  Age: 21 Year
  Sex: Female
  Weight: 70 kg

DRUGS (2)
  1. PARACETAMOL [Suspect]
     Active Substance: ACETAMINOPHEN
     Indication: PRODUCT USED FOR UNKNOWN INDICATION
     Dosage: UNKNOWN DOSE
     Route: 048
     Dates: start: 20001006, end: 20001006
  2. XANAX [Concomitant]
     Active Substance: ALPRAZOLAM
     Indication: MENTAL DISORDER
     Route: 065
     Dates: end: 20001010

REACTIONS (18)
  - Heart rate increased [Fatal]
  - Neutrophil percentage increased [Fatal]
  - Intentional overdose [Fatal]
  - Multiple organ dysfunction syndrome [Fatal]
  - Body temperature decreased [Fatal]
  - Lymphocyte percentage decreased [Fatal]
  - Acute respiratory distress syndrome [Fatal]
  - Haematocrit decreased [Fatal]
  - Completed suicide [Fatal]
  - Acute hepatic failure [Fatal]
  - Blood pressure increased [Fatal]
  - Haemoglobin decreased [Fatal]
  - Monocyte percentage decreased [Fatal]
  - Mean arterial pressure decreased [Fatal]
  - White blood cell count increased [Fatal]
  - Blood glucose increased [Fatal]
  - Acute kidney injury [Fatal]
  - Eosinophil percentage decreased [Fatal]
